FAERS Safety Report 11079050 (Version 1)
Quarter: 2015Q2

REPORT INFORMATION
  Report Type: Spontaneous
  Country: US (occurrence: US)
  Receive Date: 20150430
  Receipt Date: 20150430
  Transmission Date: 20150821
  Serious: No
  Sender: FDA-Public Use
  Company Number: US-009507513-1504USA020981

PATIENT

DRUGS (1)
  1. ASMANEX [Suspect]
     Active Substance: MOMETASONE FUROATE
     Dosage: ONE INHALATION ONCE A DAY; STRENGTH: 220 (UNIT NOT PROVIDED)
     Route: 055
     Dates: start: 201502

REACTIONS (3)
  - Product closure issue [Unknown]
  - Drug dose omission [Unknown]
  - No adverse event [Unknown]
